FAERS Safety Report 5847976-3 (Version None)
Quarter: 2008Q3

REPORT INFORMATION
  Report Type: 
  Country: None (occurrence: None)
  Receive Date: 20080818
  Receipt Date: 20080807
  Transmission Date: 20090109
  Serious: Yes (Other)
  Sender: FDA-Public Use
  Company Number: US-BAYER-200812654BCC

PATIENT
  Age: 40 Year
  Sex: Female
  Weight: 84 kg

DRUGS (1)
  1. ORIGINAL ALKA SELTZER [Suspect]
     Indication: DRUG DEPENDENCE
     Route: 048
     Dates: start: 19950101

REACTIONS (1)
  - DRUG DEPENDENCE [None]
